FAERS Safety Report 12310761 (Version 1)
Quarter: 2016Q2

REPORT INFORMATION
  Report Type: Report from Study
  Country: CZ (occurrence: CZ)
  Receive Date: 20160427
  Receipt Date: 20160427
  Transmission Date: 20160815
  Serious: Yes (Hospitalization)
  Sender: FDA-Public Use
  Company Number: PHHY2016CZ052214

PATIENT
  Age: 74 Year
  Sex: Male

DRUGS (2)
  1. PAZOPANIB [Suspect]
     Active Substance: PAZOPANIB
     Indication: METASTATIC RENAL CELL CARCINOMA
     Dosage: 400 MG, UNK
     Route: 065
     Dates: start: 20160217, end: 20160330
  2. PAZOPANIB [Suspect]
     Active Substance: PAZOPANIB
     Dosage: 800 MG, UNK
     Route: 065
     Dates: start: 20160331, end: 20160414

REACTIONS (6)
  - Dysarthria [Recovered/Resolved]
  - Gamma-glutamyltransferase increased [Recovered/Resolved]
  - Paraesthesia [Recovered/Resolved]
  - Alanine aminotransferase increased [Recovered/Resolved]
  - Paraesthesia oral [Recovered/Resolved]
  - Aspartate aminotransferase increased [Recovered/Resolved]

NARRATIVE: CASE EVENT DATE: 20160409
